FAERS Safety Report 10146229 (Version 2)
Quarter: 2014Q2

REPORT INFORMATION
  Report Type: Spontaneous
  Country: US (occurrence: None)
  Receive Date: 20140429
  Receipt Date: 20140603
  Transmission Date: 20141212
  Serious: Yes (Death)
  Sender: FDA-Public Use
  Company Number: INS201404-000052

PATIENT
  Age: 62 Year
  Sex: Female

DRUGS (1)
  1. SUBSYS [Suspect]
     Dosage: SUBLINGUAL SPRAY
     Dates: start: 20120731, end: 20120814

REACTIONS (1)
  - Death [None]
